FAERS Safety Report 8614199-4 (Version None)
Quarter: 2012Q3

REPORT INFORMATION
  Report Type: 
  Country: None (occurrence: None)
  Receive Date: 20120823
  Receipt Date: 20120813
  Transmission Date: 20120928
  Serious: Yes (Hospitalization)
  Sender: FDA-Public Use
  Company Number: US-JNJFOC-20120705262

PATIENT
  Sex: Male

DRUGS (3)
  1. ZOMIG [Concomitant]
     Route: 065
  2. TOPAMAX [Suspect]
     Indication: MIGRAINE PROPHYLAXIS
     Dosage: AT BED TIME
     Route: 048
     Dates: start: 20120704
  3. TOPAMAX [Suspect]
     Indication: HEADACHE
     Dosage: AT BED TIME
     Route: 048
     Dates: start: 20120704

REACTIONS (8)
  - TACHYCARDIA [None]
  - VISION BLURRED [None]
  - FATIGUE [None]
  - DIZZINESS [None]
  - MALAISE [None]
  - RESPIRATORY RATE INCREASED [None]
  - HEART RATE DECREASED [None]
  - HEADACHE [None]
